FAERS Safety Report 5784330-7 (Version None)
Quarter: 2008Q2

REPORT INFORMATION
  Report Type: 
  Country: None (occurrence: None)
  Receive Date: 20080619
  Receipt Date: 20080611
  Transmission Date: 20081010
  Serious: Yes (Life-Threatening, Hospitalization)
  Sender: FDA-Public Use
  Company Number: 114-21880-08060719

PATIENT
  Age: 78 Year
  Sex: Female
  Weight: 65 kg

DRUGS (2)
  1. REVLIMID [Suspect]
     Indication: MULTIPLE MYELOMA
     Dosage: 15 MG, FOR 3 WEEKS, ORAL
     Route: 048
     Dates: start: 20080428, end: 20080512
  2. DEXAMETHASONE (DEXAMETHASOONE) (0.5 MILLIGRAM, TABLETS) [Concomitant]

REACTIONS (3)
  - CREATININE RENAL CLEARANCE DECREASED [None]
  - PANCYTOPENIA [None]
  - RENAL FAILURE [None]
